FAERS Safety Report 8967004 (Version 1)
Quarter: 2012Q4

REPORT INFORMATION
  Report Type: 
  Country: NL (occurrence: NL)
  Receive Date: 20121217
  Receipt Date: 20121217
  Transmission Date: 20130627
  Serious: Yes (Other)
  Sender: FDA-Public Use
  Company Number: PHHY2012NL114947

PATIENT
  Sex: Female

DRUGS (4)
  1. ZOMETA [Suspect]
     Indication: BREAST CANCER METASTATIC
     Dosage: 4 mg/100 ml, once every 182 days
     Route: 042
  2. ZOMETA [Suspect]
     Dosage: 4 mg/100 ml, once every 182 days
     Route: 042
     Dates: start: 20091117
  3. ZOMETA [Suspect]
     Dosage: 4 mg/100 ml, once every 182 days
     Route: 042
     Dates: start: 20111130
  4. ZOMETA [Suspect]
     Dosage: 4 mg/100 ml, once every 182 days
     Route: 042
     Dates: start: 20120613

REACTIONS (2)
  - Osteonecrosis [Not Recovered/Not Resolved]
  - Pain in extremity [Not Recovered/Not Resolved]
